FAERS Safety Report 5119391-1 (Version None)
Quarter: 2006Q3

REPORT INFORMATION
  Report Type: 
  Country: None (occurrence: None)
  Receive Date: 20060928
  Receipt Date: 20060915
  Transmission Date: 20061208
  Serious: Yes (Other)
  Sender: FDA-Public Use
  Company Number: US-2006-022569

PATIENT
  Age: 36 Year
  Sex: Female
  Weight: 45.8 kg

DRUGS (8)
  1. BETASERON [Suspect]
     Indication: SECONDARY PROGRESSIVE MULTIPLE SCLEROSIS
     Dosage: 8 MIU, EVERY 2D, SUBCUTANEOUS
     Route: 058
     Dates: start: 19950919, end: 20060807
  2. BETASERON [Suspect]
     Indication: SECONDARY PROGRESSIVE MULTIPLE SCLEROSIS
     Dosage: 8 MIU, EVERY 2D, SUBCUTANEOUS
     Route: 058
     Dates: start: 20060814
  3. SOLU-MEDROL [Suspect]
     Dates: start: 19990101, end: 20060501
  4. COUMADIN [Concomitant]
  5. ZOLOFT [Concomitant]
  6. DEPAKOTE [Concomitant]
  7. TRILEPTAL [Concomitant]
  8. MULTIVITAMIN [Concomitant]

REACTIONS (7)
  - CATARACT [None]
  - FEELING ABNORMAL [None]
  - INFLUENZA LIKE ILLNESS [None]
  - MIDDLE INSOMNIA [None]
  - PHARYNGOLARYNGEAL PAIN [None]
  - POST PROCEDURAL COMPLICATION [None]
  - WHITE BLOOD CELL COUNT DECREASED [None]
